FAERS Safety Report 8717695 (Version 2)
Quarter: 2012Q4

REPORT INFORMATION
  Report Type: 
  Country: FR (occurrence: FR)
  Receive Date: 20120810
  Receipt Date: 20121012
  Transmission Date: 20130627
  Serious: Yes (Hospitalization)
  Sender: FDA-Public Use
  Company Number: FR-MERCK-1208FRA003691

PATIENT

DRUGS (15)
  1. TIENAM 500MG/500MG, POUDRE POUR PERFUSION [Suspect]
     Dosage: 500 mg, tid
     Route: 042
     Dates: start: 20120704, end: 20120707
  2. PLAVIX [Suspect]
     Dosage: 75 mg, qd
     Dates: start: 20120707, end: 20120723
  3. PARACETAMOL [Suspect]
     Dosage: 1 g, qd
     Route: 048
     Dates: start: 20120711, end: 20120717
  4. CIPROFLOXACIN HYDROCHLORIDE [Suspect]
     Dosage: 500 mg, bid
     Route: 042
     Dates: start: 20120713, end: 20120723
  5. TAZOCILLINE [Suspect]
     Dosage: 4 g, tid
     Route: 042
     Dates: start: 20120709, end: 20120713
  6. OFLOXACIN [Suspect]
     Dosage: 200 mg, bid
     Dates: start: 20120709, end: 20120711
  7. TENORMINE [Suspect]
     Dosage: 100 mg, qd
     Route: 048
     Dates: start: 20120707, end: 20120711
  8. INIPOMP [Suspect]
     Dosage: 40 mg, UNK
     Route: 048
     Dates: start: 20120707, end: 20120711
  9. ACUPAN [Suspect]
     Dosage: UNK
     Route: 042
     Dates: start: 20120714, end: 20120724
  10. LASILIX [Concomitant]
     Route: 048
  11. JOSIR [Concomitant]
  12. CORDARONE [Concomitant]
     Route: 048
  13. LOVENOX [Concomitant]
     Route: 058
  14. NICOBION [Concomitant]
     Route: 048
  15. NOVORAPID [Concomitant]
     Dosage: UNK
     Route: 058
     Dates: start: 20120711

REACTIONS (8)
  - Leukocytoclastic vasculitis [Recovered/Resolved]
  - Renal failure [None]
  - Rhabdomyolysis [None]
  - Escherichia bacteraemia [None]
  - Atrial fibrillation [None]
  - Anaemia [None]
  - Pleural disorder [None]
  - Lung disorder [None]
